FAERS Safety Report 10386397 (Version 3)
Quarter: 2015Q1

REPORT INFORMATION
  Report Type: Report from Study
  Country: DE (occurrence: DE)
  Receive Date: 20140815
  Receipt Date: 20150211
  Transmission Date: 20150720
  Serious: Yes (Hospitalization)
  Sender: FDA-Public Use
  Company Number: DE-BIOGENIDEC-2014BI081198

PATIENT
  Age: 53 Year
  Sex: Female
  Weight: 90 kg

DRUGS (1)
  1. TECFIDERA [Suspect]
     Active Substance: DIMETHYL FUMARATE
     Indication: SECONDARY PROGRESSIVE MULTIPLE SCLEROSIS
     Route: 048
     Dates: start: 20140401, end: 20141030

REACTIONS (4)
  - Diarrhoea [Not Recovered/Not Resolved]
  - Enteritis [Not Recovered/Not Resolved]
  - Product use issue [Unknown]
  - Haematochezia [Unknown]

NARRATIVE: CASE EVENT DATE: 201407
